FAERS Safety Report 21758163 (Version 1)
Quarter: 2022Q4

REPORT INFORMATION
  Report Type: Spontaneous
  Country: US (occurrence: US)
  Receive Date: 20221221
  Receipt Date: 20221221
  Transmission Date: 20230113
  Serious: No
  Sender: FDA-Public Use
  Company Number: US-002147023-NVSC2022US292398

PATIENT
  Sex: Male

DRUGS (4)
  1. SANDOSTATIN LAR DEPOT [Suspect]
     Active Substance: OCTREOTIDE ACETATE
     Indication: Insulin-like growth factor decreased
     Dosage: UNK UNK, QMO (1-2 ML HE IS NOT SURE. INJECTED MONTHLY IN HIS TUSH BY NURSE)
     Route: 065
  2. SANDOSTATIN LAR DEPOT [Suspect]
     Active Substance: OCTREOTIDE ACETATE
  3. SANDOSTATIN LAR DEPOT [Suspect]
     Active Substance: OCTREOTIDE ACETATE
  4. SOMAVERT [Suspect]
     Active Substance: PEGVISOMANT
     Indication: Insulin-like growth factor decreased
     Dosage: 10 MG, QW
     Route: 065

REACTIONS (1)
  - Drug ineffective [Unknown]
